FAERS Safety Report 25634382 (Version 1)
Quarter: 2025Q3

REPORT INFORMATION
  Report Type: Spontaneous
  Country: CN (occurrence: CN)
  Receive Date: 20250801
  Receipt Date: 20250801
  Transmission Date: 20251021
  Serious: Yes (Hospitalization)
  Sender: JOHNSON AND JOHNSON
  Company Number: CN-JNJFOC-20250728497

PATIENT
  Age: 73 Year
  Sex: Female

DRUGS (3)
  1. TECVAYLI [Suspect]
     Active Substance: TECLISTAMAB-CQYV
     Indication: Plasma cell myeloma
     Route: 058
     Dates: start: 20250610
  2. TECVAYLI [Suspect]
     Active Substance: TECLISTAMAB-CQYV
     Route: 058
     Dates: start: 20250613
  3. TECVAYLI [Suspect]
     Active Substance: TECLISTAMAB-CQYV
     Route: 058
     Dates: start: 20250616

REACTIONS (5)
  - Cytokine release syndrome [Recovering/Resolving]
  - Candida infection [Recovering/Resolving]
  - Granulocytopenia [Recovering/Resolving]
  - Infection [Recovering/Resolving]
  - COVID-19 [Recovering/Resolving]
